FAERS Safety Report 25282365 (Version 1)
Quarter: 2025Q2

REPORT INFORMATION
  Report Type: Spontaneous
  Country: HR (occurrence: HR)
  Receive Date: 20250508
  Receipt Date: 20250508
  Transmission Date: 20250716
  Serious: Yes (Other)
  Sender: ABBVIE
  Company Number: HR-SANDOZ-SDZ2025HR026996

PATIENT

DRUGS (15)
  1. ADALIMUMAB [Suspect]
     Active Substance: ADALIMUMAB
     Indication: Drug therapy
     Dosage: 40 MG, Q2W (40 MG S.C EACH II WEEK / SD WEEKLY)
     Route: 050
     Dates: start: 201905, end: 202005
  2. ADALIMUMAB [Suspect]
     Active Substance: ADALIMUMAB
     Indication: Rheumatoid arthritis
  3. Folacin [Concomitant]
     Indication: Drug therapy
     Route: 065
     Dates: start: 201911
  4. FOLIC ACID [Concomitant]
     Active Substance: FOLIC ACID
     Indication: Drug therapy
     Dosage: 5 MG, QW
     Route: 065
     Dates: start: 201905
  5. FOLIC ACID [Concomitant]
     Active Substance: FOLIC ACID
     Indication: Drug therapy
     Route: 065
  6. FOLIC ACID [Concomitant]
     Active Substance: FOLIC ACID
     Indication: Drug therapy
     Dosage: 5 MG, QW
     Route: 065
     Dates: start: 201908
  7. LEFLUNOMIDE [Concomitant]
     Active Substance: LEFLUNOMIDE
     Indication: Drug therapy
     Route: 065
     Dates: start: 202005
  8. Folbella [Concomitant]
     Indication: Drug therapy
     Route: 065
     Dates: start: 202005
  9. MEDROL [Concomitant]
     Active Substance: METHYLPREDNISOLONE
     Indication: Drug therapy
     Route: 065
     Dates: start: 201905
  10. MEDROL [Concomitant]
     Active Substance: METHYLPREDNISOLONE
     Indication: Drug therapy
     Route: 065
     Dates: start: 201908
  11. METHOTREXATE [Concomitant]
     Active Substance: METHOTREXATE
     Indication: Drug therapy
     Route: 065
     Dates: start: 201911
  12. METHOTREXATE [Concomitant]
     Active Substance: METHOTREXATE
     Indication: Drug therapy
     Dosage: 20 MG, QW
     Route: 065
     Dates: start: 201905
  13. METHOTREXATE [Concomitant]
     Active Substance: METHOTREXATE
     Indication: Drug therapy
     Dosage: 20 MG, QW
     Route: 065
     Dates: start: 202005
  14. METHOTREXATE [Concomitant]
     Active Substance: METHOTREXATE
     Indication: Drug therapy
     Dosage: 20 MG, QW
     Route: 065
     Dates: start: 201908
  15. TOCILIZUMAB [Suspect]
     Active Substance: TOCILIZUMAB
     Indication: Drug therapy
     Dosage: 162 MG, QW (S. C. 1X PER WEEK 162 MG IN A PRE-FILLED SYRINGE)
     Route: 058

REACTIONS (2)
  - Mobility decreased [Unknown]
  - Rheumatoid arthritis [Unknown]

NARRATIVE: CASE EVENT DATE: 20200401
